FAERS Safety Report 14229503 (Version 1)
Quarter: 2017Q4

REPORT INFORMATION
  Report Type: Spontaneous
  Country: FR (occurrence: FR)
  Receive Date: 20171128
  Receipt Date: 20171128
  Transmission Date: 20180321
  Serious: Yes (Hospitalization)
  Sender: FDA-Public Use
  Company Number: FR-ACCORD-061371

PATIENT
  Age: 88 Year
  Sex: Male

DRUGS (17)
  1. FUROSEMIDE. [Suspect]
     Active Substance: FUROSEMIDE
     Indication: PRODUCT USED FOR UNKNOWN INDICATION
  2. HEPARIN [Concomitant]
     Active Substance: HEPARIN SODIUM
  3. ATORVASTATIN [Concomitant]
     Active Substance: ATORVASTATIN
  4. FOSINOPRIL [Concomitant]
     Active Substance: FOSINOPRIL
  5. SODIUM POLYSTYRENE SULFONATE. [Concomitant]
     Active Substance: SODIUM POLYSTYRENE SULFONATE
  6. ALFUZOSIN [Suspect]
     Active Substance: ALFUZOSIN
     Indication: PRODUCT USED FOR UNKNOWN INDICATION
     Dosage: LP 10 MG
  7. SODIUM POLYSTYRENE SULFONATE. [Concomitant]
     Active Substance: SODIUM POLYSTYRENE SULFONATE
  8. AMLODIPINE [Concomitant]
     Active Substance: AMLODIPINE BESYLATE
  9. BISOPROLOL [Concomitant]
     Active Substance: BISOPROLOL
  10. GLYCERYL TRINITRATE [Concomitant]
     Active Substance: NITROGLYCERIN
     Dosage: EPINITRIL IVSE
  11. RAMIPRIL. [Concomitant]
     Active Substance: RAMIPRIL
  12. URAPIDIL [Concomitant]
     Active Substance: URAPIDIL
     Dosage: URAPIDIL IVSE
  13. CLOPIDOGREL [Suspect]
     Active Substance: CLOPIDOGREL BISULFATE
     Indication: PRODUCT USED FOR UNKNOWN INDICATION
  14. NAFTIDROFURYL/NAFTIDROFURYL OXALATE [Concomitant]
     Dosage: NAFTIDROFURYL SERENOA REPENS
  15. ALLOPURINOL. [Suspect]
     Active Substance: ALLOPURINOL
     Indication: PRODUCT USED FOR UNKNOWN INDICATION
  16. VERAPAMIL [Concomitant]
     Active Substance: VERAPAMIL HYDROCHLORIDE
     Dosage: LP 240 MG
  17. ACETYLSALICYLIC ACID [Concomitant]
     Active Substance: ASPIRIN
     Dosage: SALICYLIC ACID 75 MG

REACTIONS (5)
  - Fall [None]
  - Agranulocytosis [None]
  - Dermo-hypodermitis [None]
  - Neutropenia [None]
  - Pyrexia [None]

NARRATIVE: CASE EVENT DATE: 2014
